FAERS Safety Report 24766513 (Version 3)
Quarter: 2025Q2

REPORT INFORMATION
  Report Type: Spontaneous
  Country: DZ (occurrence: DZ)
  Receive Date: 20241223
  Receipt Date: 20250520
  Transmission Date: 20250717
  Serious: Yes (Death, Other)
  Sender: SANOFI AVENTIS
  Company Number: DZ-SA-2024SA377996

PATIENT
  Age: 7 Month
  Sex: Male
  Weight: 4.4 kg

DRUGS (1)
  1. MYOZYME [Suspect]
     Active Substance: ALGLUCOSIDASE ALFA
     Indication: Glycogen storage disease type II
     Dosage: 20 MG/KG, QOW
     Route: 042
     Dates: start: 20240728, end: 20240826

REACTIONS (5)
  - Cardio-respiratory arrest [Fatal]
  - Asphyxia [Fatal]
  - Bronchospasm [Fatal]
  - Cyanosis [Fatal]
  - Disease progression [Fatal]

NARRATIVE: CASE EVENT DATE: 20240826
